FAERS Safety Report 5663153-3 (Version None)
Quarter: 2008Q1

REPORT INFORMATION
  Report Type: 
  Country: None (occurrence: None)
  Receive Date: 20080313
  Receipt Date: 20080229
  Transmission Date: 20080703
  Serious: No
  Sender: FDA-Public Use
  Company Number: US-PFIZER INC-2008000642

PATIENT
  Sex: Female
  Weight: 50 kg

DRUGS (4)
  1. CHANTIX [Suspect]
     Indication: SMOKING CESSATION THERAPY
     Route: 048
     Dates: start: 20071101, end: 20071115
  2. TRAZODONE HCL [Concomitant]
  3. ATIVAN [Concomitant]
  4. ZANTAC [Concomitant]

REACTIONS (1)
  - NO ADVERSE EVENT [None]
